FAERS Safety Report 7456450-2 (Version None)
Quarter: 2011Q2

REPORT INFORMATION
  Report Type: 
  Country: None (occurrence: None)
  Receive Date: 20110503
  Receipt Date: 20110428
  Transmission Date: 20111010
  Serious: Yes (Hospitalization, Congenital Anomaly, Other)
  Sender: FDA-Public Use
  Company Number: US-PFIZER INC-2010092577

PATIENT
  Sex: Female
  Weight: 5 kg

DRUGS (13)
  1. METFORMIN [Concomitant]
     Indication: GESTATIONAL DIABETES
     Dosage: 500 MG, 3X/DAY
     Route: 064
  2. DOXYCYCLINE [Concomitant]
     Indication: MYCOPLASMA INFECTION
     Dosage: 100 MG, 2X/DAY FOR 1 WEEK
     Route: 064
  3. METFORMIN [Concomitant]
     Indication: ABORTION SPONTANEOUS
  4. BUSPAR [Concomitant]
     Indication: DEPRESSION
     Dosage: UNK
     Route: 064
  5. TRILEPTAL [Concomitant]
     Indication: DEPRESSION
     Dosage: UNK
     Route: 064
  6. ZOLOFT [Suspect]
     Dosage: 100 MG, 1X/DAY
     Route: 064
     Dates: start: 20030129
  7. ZOLOFT [Suspect]
     Dosage: 150 MG, 1X/DAY
     Route: 064
     Dates: start: 20030703
  8. VITAMIN B6 [Concomitant]
     Dosage: UNK
     Route: 064
  9. ZYPREXA [Concomitant]
     Indication: DEPRESSION
     Dosage: UNK
     Route: 064
  10. ZOLOFT [Suspect]
     Indication: AFFECTIVE DISORDER
     Dosage: 50 MG, 1X/DAY
     Route: 064
     Dates: start: 20020722, end: 20020701
  11. ZOLOFT [Suspect]
     Dosage: 100 MG, 1X/DAY
     Route: 064
     Dates: start: 20020701, end: 20021230
  12. ALBUTEROL [Concomitant]
     Dosage: UNK
     Route: 064
  13. UNISOM [Concomitant]
     Dosage: UNK
     Route: 064

REACTIONS (2)
  - DRUG EXPOSURE DURING PREGNANCY [None]
  - COARCTATION OF THE AORTA [None]
